FAERS Safety Report 8077686-6 (Version None)
Quarter: 2012Q1

REPORT INFORMATION
  Report Type: 
  Country: None (occurrence: None)
  Receive Date: 20120127
  Receipt Date: 20120119
  Transmission Date: 20120608
  Serious: Yes (Other)
  Sender: FDA-Public Use
  Company Number: CA-ABBOTT-10P-028-0687898-00

PATIENT
  Sex: Female
  Weight: 52.664 kg

DRUGS (2)
  1. HUMIRA [Suspect]
     Indication: RHEUMATOID ARTHRITIS
     Route: 058
     Dates: start: 20080722, end: 20101017
  2. HUMIRA [Suspect]
     Dates: start: 20111212

REACTIONS (9)
  - RHEUMATOID ARTHRITIS [None]
  - OSTEONECROSIS OF JAW [None]
  - GENERALISED OEDEMA [None]
  - REFUSAL OF TREATMENT BY PATIENT [None]
  - ABORTION SPONTANEOUS [None]
  - PAIN [None]
  - RASH GENERALISED [None]
  - ABDOMINAL PAIN [None]
  - FATIGUE [None]
